FAERS Safety Report 9329627 (Version 1)
Quarter: 2013Q2

REPORT INFORMATION
  Report Type: Spontaneous
  Country: US (occurrence: US)
  Receive Date: 20130604
  Receipt Date: 20130604
  Transmission Date: 20140414
  Serious: No
  Sender: FDA-Public Use
  Company Number: US-SANOFI-AVENTIS-2012SA089137

PATIENT
  Sex: Female

DRUGS (3)
  1. LANTUS SOLOSTAR [Suspect]
     Route: 058
  2. SOLOSTAR [Suspect]
  3. NOVOLOG [Concomitant]

REACTIONS (3)
  - Heart rate increased [Unknown]
  - Tinnitus [Unknown]
  - Headache [Unknown]
